FAERS Safety Report 24532445 (Version 3)
Quarter: 2025Q2

REPORT INFORMATION
  Report Type: Report from Study
  Country: US (occurrence: US)
  Receive Date: 20241022
  Receipt Date: 20250410
  Transmission Date: 20250716
  Serious: Yes (Other)
  Sender: ABBVIE
  Company Number: US-ABBVIE-5928760

PATIENT
  Age: 68 Year
  Sex: Female
  Weight: 95 kg

DRUGS (1)
  1. HUMIRA [Suspect]
     Active Substance: ADALIMUMAB
     Indication: Product used for unknown indication
     Route: 058
     Dates: start: 2004

REACTIONS (7)
  - Knee arthroplasty [Recovered/Resolved]
  - Condition aggravated [Recovered/Resolved]
  - Illness [Unknown]
  - Musculoskeletal stiffness [Unknown]
  - Fracture [Unknown]
  - Joint range of motion decreased [Unknown]
  - Arthralgia [Unknown]

NARRATIVE: CASE EVENT DATE: 20230515
